FAERS Safety Report 7115018-8 (Version None)
Quarter: 2010Q4

REPORT INFORMATION
  Report Type: 
  Country: None (occurrence: None)
  Receive Date: 20101122
  Receipt Date: 20080902
  Transmission Date: 20110411
  Serious: No
  Sender: FDA-Public Use
  Company Number: 2008BI023366

PATIENT
  Sex: Male

DRUGS (2)
  1. TYSABRI [Suspect]
     Indication: MULTIPLE SCLEROSIS
     Route: 042
     Dates: start: 20060918
  2. TYSABRI [Suspect]
     Route: 042
     Dates: start: 20050110, end: 20050110

REACTIONS (1)
  - GAIT DISTURBANCE [None]
